FAERS Safety Report 19172824 (Version 2)
Quarter: 2021Q2

REPORT INFORMATION
  Report Type: Spontaneous
  Country: CO (occurrence: CO)
  Receive Date: 20210423
  Receipt Date: 20210503
  Transmission Date: 20210717
  Serious: Yes (Other)
  Sender: FDA-Public Use
  Company Number: CO-AUROBINDO-AUR-APL-2021-016912

PATIENT
  Age: 33 Year
  Sex: Male

DRUGS (2)
  1. FOLOTYN [Suspect]
     Active Substance: PRALATREXATE
     Indication: HEPATOSPLENIC T-CELL LYMPHOMA
     Dosage: 33.6 MILLIGRAM, DAILY
     Route: 042
     Dates: start: 202012
  2. FOLOTYN [Suspect]
     Active Substance: PRALATREXATE
     Dosage: 33.6 MILLIGRAM, DAILY
     Route: 042
     Dates: start: 20210412

REACTIONS (1)
  - Jaundice [Not Recovered/Not Resolved]

NARRATIVE: CASE EVENT DATE: 20210329
